FAERS Safety Report 8914103 (Version 3)
Quarter: 2013Q1

REPORT INFORMATION
  Report Type: Spontaneous
  Country: US (occurrence: US)
  Receive Date: 20121119
  Receipt Date: 20130123
  Transmission Date: 20140127
  Serious: Yes (Hospitalization, Other)
  Sender: FDA-Public Use
  Company Number: US-AMGEN-USASP2012072233

PATIENT
  Age: 84 Year
  Sex: Male
  Weight: 74.83 kg

DRUGS (22)
  1. NEULASTA [Suspect]
     Indication: NEUTROPENIA
     Dosage: 6 MG, AFTER EACH CHEMOTHERAPY
     Route: 058
     Dates: start: 20071212, end: 20121108
  2. RITUXAN [Concomitant]
     Dosage: UNK
     Dates: start: 200712
  3. CYCLOPHOSPHAMIDE [Concomitant]
     Dosage: UNK
     Dates: start: 200712, end: 200803
  4. DOXORUBICIN [Concomitant]
     Dosage: UNK
     Dates: start: 200712, end: 200803
  5. VINCRISTINE [Concomitant]
     Dosage: UNK
     Dates: start: 200712, end: 200803
  6. VINCRISTINE [Concomitant]
     Dosage: UNK
     Dates: start: 201105, end: 201106
  7. VINCRISTINE [Concomitant]
     Dosage: UNK
     Dates: start: 20120718
  8. PREDNISONE [Concomitant]
     Dosage: UNK
     Dates: start: 200712, end: 200803
  9. AMIODARONE [Concomitant]
     Dosage: 100 MG PER DAY
  10. LEVOTHYROXINE [Concomitant]
     Dosage: 100 MUG PER DAY
  11. ACYCLOVIR                          /00587301/ [Concomitant]
     Indication: PROPHYLAXIS
     Dosage: 400 MG, BID
  12. VITAMIN E                          /00110501/ [Concomitant]
     Dosage: UNK
  13. CALCIUM [Concomitant]
     Dosage: UNK
  14. CROMOLYN                           /00082101/ [Concomitant]
     Dosage: UNK UNK, EACH NAUSTRIL BID
     Route: 045
  15. FLUTICASONE [Concomitant]
     Dosage: UNK DAILY TO EACH NAUSTRIL.
     Route: 045
  16. BENADRYL                           /00000402/ [Concomitant]
     Dosage: UNK
  17. VITAMIN D /00107901/ [Concomitant]
     Dosage: UNK
  18. ZYRTEC [Concomitant]
     Dosage: UNK
  19. VP-16 [Concomitant]
     Dosage: UNK
  20. DECADRON                           /00016001/ [Concomitant]
     Dosage: 10 MG, UNK
  21. CULTURELLE [Concomitant]
     Dosage: UNK UNK, BID
  22. DSS [Concomitant]
     Dosage: UNK

REACTIONS (24)
  - Cellulitis [Unknown]
  - Fasciitis [Unknown]
  - Mantle cell lymphoma recurrent [Unknown]
  - Atrial fibrillation [Unknown]
  - Supraventricular tachycardia [Unknown]
  - Hypothyroidism [Unknown]
  - Deep vein thrombosis [Unknown]
  - Hypotension [Unknown]
  - Palpitations [Recovered/Resolved]
  - Fatigue [Unknown]
  - Productive cough [Unknown]
  - Asthenia [Unknown]
  - Lymphoedema [Recovered/Resolved]
  - Drug hypersensitivity [Unknown]
  - Poor quality sleep [Unknown]
  - Upper respiratory tract infection [Unknown]
  - Dysphonia [Recovering/Resolving]
  - Local swelling [Unknown]
  - Hernia [Not Recovered/Not Resolved]
  - Heart rate irregular [Unknown]
  - Leukopenia [Unknown]
  - Leukocytosis [Unknown]
  - Rash [Unknown]
  - Erythema [Unknown]
